FAERS Safety Report 5650564-5 (Version None)
Quarter: 2008Q1

REPORT INFORMATION
  Report Type: 
  Country: None (occurrence: None)
  Receive Date: 20080304
  Receipt Date: 20080304
  Transmission Date: 20080703
  Serious: Yes (Other)
  Sender: FDA-Public Use
  Company Number: None

PATIENT
  Age: 59 Year
  Sex: Male
  Weight: 97.5234 kg

DRUGS (4)
  1. CHANTIX [Suspect]
     Indication: CHRONIC OBSTRUCTIVE PULMONARY DISEASE
     Dosage: CHANTIX BID PO
     Route: 048
     Dates: start: 20071101, end: 20071230
  2. CHANTIX [Suspect]
     Indication: TOBACCO ABUSE
     Dosage: CHANTIX BID PO
     Route: 048
     Dates: start: 20071101, end: 20071230
  3. CHANTIX [Suspect]
     Indication: CHRONIC OBSTRUCTIVE PULMONARY DISEASE
     Dosage: CHANTIX BID PO
     Route: 048
     Dates: start: 20080207, end: 20080227
  4. CHANTIX [Suspect]
     Indication: TOBACCO ABUSE
     Dosage: CHANTIX BID PO
     Route: 048
     Dates: start: 20080207, end: 20080227

REACTIONS (4)
  - ABDOMINAL DISTENSION [None]
  - CARDIAC FAILURE CONGESTIVE [None]
  - CONDITION AGGRAVATED [None]
  - NO THERAPEUTIC RESPONSE [None]
